FAERS Safety Report 6994730-5 (Version None)
Quarter: 2010Q3

REPORT INFORMATION
  Report Type: 
  Country: None (occurrence: None)
  Receive Date: 20100917
  Receipt Date: 20090227
  Transmission Date: 20110219
  Serious: Yes (Hospitalization, Other)
  Sender: FDA-Public Use
  Company Number: HQWYE059920MAY04

PATIENT
  Sex: Female

DRUGS (3)
  1. PREMPRO [Suspect]
     Dosage: UNKNOWN
     Route: 048
     Dates: start: 19960101, end: 20000201
  2. MEDROXYPROGESTERONE ACETATE [Suspect]
     Dosage: UNKNOWN
     Route: 055
  3. PREMARIN [Suspect]
     Dosage: UNKNOWN
     Route: 048
     Dates: start: 20000201, end: 20010101

REACTIONS (1)
  - BREAST CANCER [None]
